FAERS Safety Report 17297820 (Version 1)
Quarter: 2020Q1

REPORT INFORMATION
  Report Type: Report from Study
  Country: CO (occurrence: CO)
  Receive Date: 20200122
  Receipt Date: 20200122
  Transmission Date: 20200409
  Serious: Yes (Hospitalization)
  Sender: FDA-Public Use
  Company Number: CO-ROCHE-2486882

PATIENT
  Sex: Female

DRUGS (2)
  1. HERCEPTIN [Suspect]
     Active Substance: TRASTUZUMAB
     Indication: PRODUCT USED FOR UNKNOWN INDICATION
     Route: 065
  2. OXYCODONE [Concomitant]
     Active Substance: OXYCODONE

REACTIONS (6)
  - Haemoglobin decreased [Unknown]
  - Gastritis [Unknown]
  - Infected neoplasm [Unknown]
  - Tumour haemorrhage [Unknown]
  - Neoplasm [Unknown]
  - Gastric ulcer [Unknown]
